FAERS Safety Report 20425772 (Version 1)
Quarter: 2022Q1

REPORT INFORMATION
  Report Type: Report from Study
  Country: US (occurrence: US)
  Receive Date: 20220204
  Receipt Date: 20220204
  Transmission Date: 20220423
  Serious: No
  Sender: FDA-Public Use
  Company Number: US-EXELIXIS-CABO-21040226

PATIENT
  Sex: Male

DRUGS (3)
  1. CABOMETYX [Suspect]
     Active Substance: CABOZANTINIB S-MALATE
     Indication: Prostate cancer
     Dosage: 40 MG, QD
     Dates: start: 20210416, end: 20210804
  2. FENTANYL [Suspect]
     Active Substance: FENTANYL
     Indication: Arthralgia
     Dosage: UNK
  3. AMINO ACIDS [Concomitant]
     Active Substance: AMINO ACIDS

REACTIONS (23)
  - Prostatic specific antigen increased [Unknown]
  - Neuropathy peripheral [Not Recovered/Not Resolved]
  - Muscular weakness [Unknown]
  - Nail disorder [Unknown]
  - Hair colour changes [Unknown]
  - Contusion [Not Recovered/Not Resolved]
  - Oral discomfort [Not Recovered/Not Resolved]
  - Dry mouth [Unknown]
  - Blood pressure decreased [Not Recovered/Not Resolved]
  - Oral pain [Not Recovered/Not Resolved]
  - Ageusia [Recovering/Resolving]
  - Musculoskeletal pain [Recovered/Resolved]
  - Headache [Recovering/Resolving]
  - Decreased appetite [Recovering/Resolving]
  - Hepatic enzyme increased [Unknown]
  - Fatigue [Recovering/Resolving]
  - Nausea [Unknown]
  - Weight decreased [Unknown]
  - Diarrhoea [Unknown]
  - Dehydration [Unknown]
  - Dizziness [Not Recovered/Not Resolved]
  - Constipation [Not Recovered/Not Resolved]
  - Off label use [Unknown]
